FAERS Safety Report 4816644-9 (Version None)
Quarter: 2005Q4

REPORT INFORMATION
  Report Type: 
  Country: None (occurrence: None)
  Receive Date: 20051101
  Receipt Date: 20051020
  Transmission Date: 20060501
  Serious: Yes (Death, Hospitalization)
  Sender: FDA-Public Use
  Company Number: US-BRISTOL-MYERS SQUIBB COMPANY-13151741

PATIENT
  Age: 75 Year
  Sex: Male

DRUGS (2)
  1. COUMADIN [Suspect]
     Dosage: DURATION 4 TO 5 YEARS
  2. PLAVIX [Suspect]

REACTIONS (4)
  - CORONARY ARTERY OCCLUSION [None]
  - ECCHYMOSIS [None]
  - HAEMORRHAGE [None]
  - PULMONARY THROMBOSIS [None]
